FAERS Safety Report 8287848-0 (Version None)
Quarter: 2012Q2

REPORT INFORMATION
  Report Type: 
  Country: None (occurrence: None)
  Receive Date: 20120411
  Receipt Date: 20120411
  Transmission Date: 20120825
  Serious: No
  Sender: FDA-Public Use
  Company Number: None

PATIENT
  Sex: Female
  Weight: 81.8 kg

DRUGS (1)
  1. HYDROCODONE BITARTRATE + ACETAMINOPHEN [Suspect]
     Indication: PAIN
     Dosage: 7.5-3.25 EVERY 4/HR ORAL
     Route: 048
     Dates: start: 20120125

REACTIONS (4)
  - MALAISE [None]
  - VOMITING [None]
  - DIARRHOEA [None]
  - PRODUCT SUBSTITUTION ISSUE [None]
